FAERS Safety Report 11169918 (Version 1)
Quarter: 2015Q2

REPORT INFORMATION
  Report Type: Spontaneous
  Country: JP (occurrence: JP)
  Receive Date: 20150607
  Receipt Date: 20150607
  Transmission Date: 20150821
  Serious: Yes (Other)
  Sender: FDA-Public Use
  Company Number: JP-009507513-1506JPN002967

PATIENT
  Age: 78 Year
  Sex: Female
  Weight: 40 kg

DRUGS (1)
  1. FOSAMAX [Suspect]
     Active Substance: ALENDRONATE SODIUM
     Dosage: UNK
     Route: 048

REACTIONS (1)
  - Hip fracture [Unknown]
